FAERS Safety Report 8175475-5 (Version None)
Quarter: 2012Q1

REPORT INFORMATION
  Report Type: 
  Country: None (occurrence: None)
  Receive Date: 20120229
  Receipt Date: 20120220
  Transmission Date: 20120608
  Serious: Yes (Other)
  Sender: FDA-Public Use
  Company Number: US-RB-028852-11

PATIENT
  Sex: Female

DRUGS (4)
  1. SUBOXONE [Suspect]
     Indication: DRUG DEPENDENCE
     Dosage: DOSAGE INFORMATION UNKNOWN- 16-20 MG DAILY
     Route: 060
     Dates: start: 20090101
  2. PROVIGIL [Concomitant]
     Indication: NARCOLEPSY
  3. MIRALAX [Concomitant]
     Indication: CONSTIPATION
     Dosage: DOSING INFORMATION UNKNOWN
  4. SERTALINE [Concomitant]
     Indication: DEPRESSION

REACTIONS (3)
  - VAGINAL HAEMORRHAGE [None]
  - SELECTIVE ABORTION [None]
  - MATERNAL EXPOSURE DURING PREGNANCY [None]
